FAERS Safety Report 14280838 (Version 2)
Quarter: 2018Q1

REPORT INFORMATION
  Report Type: Spontaneous
  Country: PT (occurrence: PT)
  Receive Date: 20171213
  Receipt Date: 20180112
  Transmission Date: 20180508
  Serious: Yes (Hospitalization)
  Sender: FDA-Public Use
  Company Number: PT-AUROBINDO-AUR-APL-2017-45178

PATIENT
  Age: 13 Year
  Sex: Female
  Weight: 58.7 kg

DRUGS (2)
  1. PARACETAMOL TABLET [Suspect]
     Active Substance: ACETAMINOPHEN
     Indication: PYREXIA
     Dosage: 1 G DE 8/8 HORAS (M?XIMO ADMINISTRADO)
     Route: 048
     Dates: start: 20170714, end: 20170808
  2. PARACETAMOL TABLET [Suspect]
     Active Substance: ACETAMINOPHEN
     Indication: PAIN
     Dosage: UNK
     Dates: start: 2017, end: 2017

REACTIONS (7)
  - Tubulointerstitial nephritis [Recovered/Resolved]
  - Blood creatinine increased [Recovered/Resolved]
  - Urticaria [Unknown]
  - Lip oedema [Unknown]
  - Glomerular filtration rate decreased [Recovered/Resolved]
  - Rash pruritic [Unknown]
  - Vomiting [Unknown]

NARRATIVE: CASE EVENT DATE: 2017
